FAERS Safety Report 9665322 (Version 2)
Quarter: 2013Q4

REPORT INFORMATION
  Report Type: Report from Study
  Country: US (occurrence: US)
  Receive Date: 20131102
  Receipt Date: 20131102
  Transmission Date: 20140711
  Serious: Yes (Hospitalization, Other)
  Sender: FDA-Public Use
  Company Number: US-ABBVIE-13P-163-1133753-00

PATIENT
  Age: 53 Year
  Sex: Male

DRUGS (16)
  1. HUMIRA [Suspect]
     Indication: COLITIS ULCERATIVE
     Dosage: DAY 1
     Dates: start: 20130727, end: 20130727
  2. HUMIRA [Suspect]
     Dosage: DAY2
     Dates: start: 20130728, end: 20130728
  3. HUMIRA [Suspect]
     Dosage: DAY 15
     Dates: start: 20130811, end: 20130811
  4. HUMIRA [Suspect]
     Route: 058
     Dates: start: 20130825
  5. PREDNISONE [Concomitant]
     Indication: PRODUCT USED FOR UNKNOWN INDICATION
     Dosage: 10 MG THIS WEEK (DOSE PACK )
  6. PREDNISONE [Concomitant]
     Dates: start: 20130829, end: 20130905
  7. PREDNISONE [Concomitant]
     Dates: start: 20130905, end: 20130912
  8. PREDNISONE [Concomitant]
     Dosage: DECREASE ACCRODINGLY
     Dates: start: 20130912
  9. SULFASALAZINE [Concomitant]
     Indication: PRODUCT USED FOR UNKNOWN INDICATION
     Dosage: (500 MG 3 TABLETS 3 TIMES A AY)
  10. FOLIC ACID [Concomitant]
     Indication: PRODUCT USED FOR UNKNOWN INDICATION
     Dosage: 5 TABLETS DAILY
  11. IRON [Concomitant]
     Indication: PRODUCT USED FOR UNKNOWN INDICATION
  12. CENTRUM [Concomitant]
     Indication: PRODUCT USED FOR UNKNOWN INDICATION
     Dosage: DAILY
  13. OSCAL CALCIUM WITH VITAMIN D [Concomitant]
     Indication: PRODUCT USED FOR UNKNOWN INDICATION
  14. EYE DROPS [Concomitant]
     Indication: GLAUCOMA
  15. FERROUS SULFATE [Concomitant]
     Indication: PRODUCT USED FOR UNKNOWN INDICATION
  16. PROTONIX [Concomitant]
     Indication: DYSPEPSIA

REACTIONS (5)
  - Rectal fissure [Not Recovered/Not Resolved]
  - Haemorrhoids [Not Recovered/Not Resolved]
  - Diarrhoea haemorrhagic [Not Recovered/Not Resolved]
  - Diarrhoea haemorrhagic [Not Recovered/Not Resolved]
  - Drug ineffective [Not Recovered/Not Resolved]
